FAERS Safety Report 4902848-3 (Version None)
Quarter: 2006Q1

REPORT INFORMATION
  Report Type: 
  Country: None (occurrence: None)
  Receive Date: 20060207
  Receipt Date: 20010426
  Transmission Date: 20060701
  Serious: Yes (Other)
  Sender: FDA-Public Use
  Company Number: UG-2001-BP-01414

PATIENT
  Sex: Female

DRUGS (3)
  1. NEVIRAPINE [Suspect]
     Indication: ACQUIRED IMMUNODEFICIENCY SYNDROME
     Route: 048
     Dates: start: 20010115, end: 20010312
  2. VITAMIN K [Concomitant]
     Indication: PROPHYLAXIS
     Route: 030
     Dates: start: 20010113, end: 20010113
  3. TICE BCG [Concomitant]
     Indication: IMMUNISATION
     Route: 023
     Dates: start: 20010115, end: 20010115

REACTIONS (5)
  - DERMATITIS [None]
  - HIV TEST POSITIVE [None]
  - LYMPHOCYTOSIS [None]
  - THROMBOCYTOPENIA [None]
  - VIRAL UPPER RESPIRATORY TRACT INFECTION [None]
